FAERS Safety Report 4323726-7 (Version None)
Quarter: 2004Q1

REPORT INFORMATION
  Report Type: 
  Country: None (occurrence: None)
  Receive Date: 20040323
  Receipt Date: 20040309
  Transmission Date: 20041129
  Serious: Yes (Other)
  Sender: FDA-Public Use
  Company Number: 2004-06776

PATIENT
  Age: 50 Year
  Sex: Male
  Weight: 49 kg

DRUGS (4)
  1. ADEFOVIR DIPIVOXIL [Suspect]
     Indication: HEPATITIS B
     Dosage: 10 MG QD PO
     Route: 048
     Dates: start: 20030813, end: 20031101
  2. MEDROL [Concomitant]
  3. NEORAL [Concomitant]
  4. PLAVIX [Concomitant]

REACTIONS (1)
  - DRUG INTOLERANCE [None]
